FAERS Safety Report 5596519-0 (Version None)
Quarter: 2007Q4

REPORT INFORMATION
  Report Type: 
  Country: None (occurrence: None)
  Receive Date: 20071219
  Receipt Date: 20070927
  Transmission Date: 20080405
  Serious: No
  Sender: FDA-Public Use
  Company Number: HQWYE377728SEP07

PATIENT

DRUGS (1)
  1. TORISEL [Suspect]
     Indication: METASTASES TO LIVER
     Dosage: 6 CYCLES, INTRAVENOUS
     Route: 042
     Dates: start: 20070101

REACTIONS (1)
  - LIVER FUNCTION TEST ABNORMAL [None]
